FAERS Safety Report 22624271 (Version 2)
Quarter: 2023Q2

REPORT INFORMATION
  Report Type: Other
  Country: KW (occurrence: None)
  Receive Date: 20230621
  Receipt Date: 20230626
  Transmission Date: 20230721
  Serious: Yes (Death, Hospitalization)
  Sender: FDA-Public Use
  Company Number: KW-ROCHE-3372406

PATIENT
  Age: 56 Year
  Sex: Female

DRUGS (1)
  1. MYCOPHENOLATE MOFETIL [Suspect]
     Active Substance: MYCOPHENOLATE MOFETIL
     Indication: Sarcoidosis
     Route: 065

REACTIONS (6)
  - COVID-19 [Fatal]
  - Bacterial infection [Fatal]
  - Fungal infection [Fatal]
  - Sepsis [Fatal]
  - Renal failure [Fatal]
  - Acute respiratory distress syndrome [Fatal]
